FAERS Safety Report 17878186 (Version 7)
Quarter: 2021Q4

REPORT INFORMATION
  Report Type: Spontaneous
  Country: ES (occurrence: ES)
  Receive Date: 20200610
  Receipt Date: 20211115
  Transmission Date: 20220303
  Serious: Yes (Other)
  Sender: FDA-Public Use
  Company Number: ES-SUN PHARMACEUTICAL INDUSTRIES LTD-2020RR-248828

PATIENT
  Age: 46 Year
  Sex: Male

DRUGS (17)
  1. EZETIMIBE [Interacting]
     Active Substance: EZETIMIBE
     Indication: Hypercholesterolaemia
     Dosage: 10 MILLIGRAM, ONCE A DAY (0/0/1/0)(3 MONTHS)
     Route: 065
  2. FENTANYL [Interacting]
     Active Substance: FENTANYL
     Indication: Chest pain
     Dosage: 200 MICROGRAM, ONCE A DAY (0/0/0/1)
     Route: 002
  3. PRAVASTATIN [Interacting]
     Active Substance: PRAVASTATIN
     Indication: Hypercholesterolaemia
     Dosage: 40 MILLIGRAM, ONCE A DAY
     Route: 065
  4. BUPRENORPHINE [Interacting]
     Active Substance: BUPRENORPHINE
     Indication: Chest pain
     Dosage: 52.5 MICROGRAM, 72 HOUR (1/72H )
     Route: 065
  5. FENOFIBRATE [Interacting]
     Active Substance: FENOFIBRATE
     Indication: Hypercholesterolaemia
     Dosage: 160 MILLIGRAM, ONCE A DAY (0/0/1/0)
     Route: 065
     Dates: end: 2019
  6. FENOFIBRATE\PRAVASTATIN [Interacting]
     Active Substance: FENOFIBRATE\PRAVASTATIN
     Indication: Hypercholesterolaemia
     Dosage: 1 DOSAGE FORM, ONCE A DAY
     Route: 065
     Dates: start: 2019
  7. AMITRIPTYLINE [Concomitant]
     Active Substance: AMITRIPTYLINE
     Indication: Depression
     Dosage: 25 MILLIGRAM, ONCE A DAY (0/0/0/1)
     Route: 065
  8. ENALAPRIL\HYDROCHLOROTHIAZIDE [Concomitant]
     Active Substance: ENALAPRIL\HYDROCHLOROTHIAZIDE
     Indication: Hypertension
     Dosage: 1 DOSAGE FORM, ONCE A DAY (1/0/0/0)
     Route: 065
  9. ETORICOXIB [Concomitant]
     Active Substance: ETORICOXIB
     Indication: Chest pain
     Dosage: 90 MILLIGRAM, ONCE A DAY (1/0/0/0)
     Route: 065
  10. EZETIMIBE [Concomitant]
     Active Substance: EZETIMIBE
     Indication: Hypercholesterolaemia
     Dosage: 10 MILLIGRAM, ONCE A DAY
     Route: 065
     Dates: start: 201904
  11. FENTANYL [Concomitant]
     Active Substance: FENTANYL
     Indication: Chest pain
     Dosage: 200 MICROGRAM, ONCE A DAY, 0/0/0/1
     Route: 002
  12. LORAZEPAM [Concomitant]
     Active Substance: LORAZEPAM
     Indication: Anxiety
     Dosage: 1 MILLIGRAM, AS REQUIRED
     Route: 065
  13. METFORMIN HYDROCHLORIDE [Concomitant]
     Active Substance: METFORMIN HYDROCHLORIDE
     Indication: Type 2 diabetes mellitus
     Dosage: 850 MILLIGRAM, TWO TIMES A DAY, 1700 MG ONCE A DAY (1/0/1/0)
     Route: 065
  14. METAMIZOL [Concomitant]
     Active Substance: METAMIZOLE SODIUM
     Indication: Chest pain
     Dosage: 575 MILLIGRAM, ONCE A DAY (0/1/0/0)
     Route: 065
  15. ACETAMINOPHEN [Concomitant]
     Active Substance: ACETAMINOPHEN
     Indication: Chest pain
     Dosage: 1 GRAM, ONCE A DAY (1/0/0/0)
     Route: 065
  16. ACETAMINOPHEN\TRAMADOL [Concomitant]
     Active Substance: ACETAMINOPHEN\TRAMADOL
     Indication: Chest pain
     Dosage: 3 DOSAGE FORM, ONCE A DAY (1/1/1/0)
     Route: 065
  17. PREGABALIN [Concomitant]
     Active Substance: PREGABALIN
     Indication: Chest pain
     Dosage: 150 MILLIGRAM, 3 TIMES A DAY, (450 MG ONCE A DAY), 1/1/1/0
     Route: 065

REACTIONS (5)
  - Anxiety [Unknown]
  - Hepatic enzyme increased [Recovering/Resolving]
  - Gamma-glutamyltransferase increased [Recovered/Resolved]
  - Drug interaction [Unknown]
  - Drug withdrawal syndrome [Unknown]
